FAERS Safety Report 7729440-X (Version None)
Quarter: 2011Q3

REPORT INFORMATION
  Report Type: 
  Country: None (occurrence: None)
  Receive Date: 20110906
  Receipt Date: 20110824
  Transmission Date: 20111222
  Serious: Yes (Hospitalization)
  Sender: FDA-Public Use
  Company Number: IN-ELI_LILLY_AND_COMPANY-IN201107001296

PATIENT
  Sex: Male

DRUGS (3)
  1. VITAMIN D [Concomitant]
     Indication: SUPPLEMENTATION THERAPY
  2. FORTEO [Suspect]
     Indication: OSTEOPOROSIS
     Dosage: 20 UG, QD
     Route: 058
     Dates: start: 20110601, end: 20110801
  3. CALCIUM CARBONATE [Concomitant]
     Indication: SUPPLEMENTATION THERAPY

REACTIONS (2)
  - BACK PAIN [None]
  - PAIN IN EXTREMITY [None]
